FAERS Safety Report 9734289 (Version 1)
Quarter: 2013Q4

REPORT INFORMATION
  Report Type: Report from Study
  Country: GB (occurrence: GB)
  Receive Date: 20131205
  Receipt Date: 20131205
  Transmission Date: 20140711
  Serious: Yes (Death, Hospitalization, Other)
  Sender: FDA-Public Use
  Company Number: GB-ROCHE-1313635

PATIENT
  Age: 75 Year
  Sex: Male

DRUGS (2)
  1. XELODA [Suspect]
     Indication: ADENOCARCINOMA OF COLON
     Route: 065
     Dates: start: 200907
  2. AVASTIN [Suspect]
     Indication: ADENOCARCINOMA OF COLON
     Route: 065
     Dates: start: 200907

REACTIONS (6)
  - Death [Fatal]
  - Hydronephrosis [Unknown]
  - Intestinal obstruction [Unknown]
  - Diarrhoea [Unknown]
  - Palmar-plantar erythrodysaesthesia syndrome [Unknown]
  - Weight decreased [Unknown]
